FAERS Safety Report 9666414 (Version 1)
Quarter: 2013Q4

REPORT INFORMATION
  Report Type: Spontaneous
  Country: AU (occurrence: AU)
  Receive Date: 20131104
  Receipt Date: 20131104
  Transmission Date: 20140711
  Serious: Yes (Hospitalization)
  Sender: FDA-Public Use
  Company Number: AU-PFIZER INC-2013307685

PATIENT
  Sex: Female

DRUGS (1)
  1. PRISTIQ [Suspect]
     Indication: ANXIETY
     Dosage: 150 MG, 1X/DAY

REACTIONS (7)
  - Aphagia [Unknown]
  - Foreign body [Unknown]
  - Fluid intake reduced [Unknown]
  - Vomiting [Unknown]
  - Wrong technique in drug usage process [Unknown]
  - Agitation [Unknown]
  - Off label use [Unknown]
